FAERS Safety Report 6164703-3 (Version None)
Quarter: 2009Q2

REPORT INFORMATION
  Report Type: 
  Country: None (occurrence: None)
  Receive Date: 20090423
  Receipt Date: 20090413
  Transmission Date: 20091009
  Serious: Yes (Hospitalization, Other)
  Sender: FDA-Public Use
  Company Number: US-ROCHE-627127

PATIENT
  Sex: Female

DRUGS (12)
  1. BONIVA [Suspect]
     Indication: OSTEOPOROSIS
     Route: 048
     Dates: start: 20090201
  2. SPIRIVA [Concomitant]
  3. ASMANEX TWISTHALER [Concomitant]
     Dosage: DRUG NAME: ASTHMANEX
  4. SEREVENT [Concomitant]
  5. ALBUTEROL [Concomitant]
     Dosage: FORM: NEBULISER
  6. LISINOPRIL [Concomitant]
  7. SYNTHROID [Concomitant]
  8. POTASSIUM CHLORIDE [Concomitant]
  9. MAGNESIUM SULFATE [Concomitant]
  10. CALCIUM/VITAMIN D [Concomitant]
     Dosage: DRUG NAME: CALCIUM WITH VITAMIN D
  11. MULTI-VITAMIN [Concomitant]
  12. OPCON-A [Concomitant]

REACTIONS (6)
  - ARTHRALGIA [None]
  - ASTHMA [None]
  - CHRONIC OBSTRUCTIVE PULMONARY DISEASE [None]
  - LUNG INFECTION [None]
  - PYREXIA [None]
  - VIRAL INFECTION [None]
